FAERS Safety Report 13952185 (Version 1)
Quarter: 2017Q3

REPORT INFORMATION
  Report Type: Spontaneous
  Country: US (occurrence: US)
  Receive Date: 20170911
  Receipt Date: 20170911
  Transmission Date: 20171128
  Serious: Yes (Hospitalization, Other)
  Sender: FDA-Public Use
  Company Number: US-HETERO CORPORATE-HET2017US00161

PATIENT
  Age: 59 Year
  Sex: Female

DRUGS (2)
  1. WARFARIN [Concomitant]
     Active Substance: WARFARIN
     Indication: EMBOLISM VENOUS
     Dosage: UNK
     Route: 048
  2. LINEZOLID. [Suspect]
     Active Substance: LINEZOLID
     Indication: CELLULITIS STAPHYLOCOCCAL
     Dosage: UNK
     Route: 065

REACTIONS (5)
  - Septic shock [Recovering/Resolving]
  - International normalised ratio increased [Recovering/Resolving]
  - Thrombocytopenia [Recovering/Resolving]
  - Hypoglycaemia [Recovering/Resolving]
  - Lactic acidosis [Recovering/Resolving]
